FAERS Safety Report 9562272 (Version 1)
Quarter: 2013Q3

REPORT INFORMATION
  Report Type: Spontaneous
  Country: US (occurrence: US)
  Receive Date: 20130927
  Receipt Date: 20130927
  Transmission Date: 20140515
  Serious: No
  Sender: FDA-Public Use
  Company Number: US-GLAXOSMITHKLINE-A1038060A

PATIENT
  Age: 43 Year
  Sex: Female

DRUGS (2)
  1. MEKINIST [Suspect]
     Indication: MALIGNANT MELANOMA
     Dosage: 2MG PER DAY
     Dates: start: 20130709
  2. TAFINLAR [Concomitant]
     Indication: MALIGNANT MELANOMA
     Dosage: 75MG TWICE PER DAY
     Dates: start: 20130709

REACTIONS (4)
  - Rash [Unknown]
  - Dermatitis contact [Unknown]
  - Rash erythematous [Unknown]
  - Rash pruritic [Unknown]
